FAERS Safety Report 21400378 (Version 1)
Quarter: 2022Q4

REPORT INFORMATION
  Report Type: Spontaneous
  Country: US (occurrence: US)
  Receive Date: 20221002
  Receipt Date: 20221002
  Transmission Date: 20230113
  Serious: No
  Sender: FDA-Public Use
  Company Number: US-ELI_LILLY_AND_COMPANY-US202209014171

PATIENT
  Sex: Female

DRUGS (1)
  1. TALTZ [Suspect]
     Active Substance: IXEKIZUMAB
     Indication: Psoriasis
     Dosage: 80 MG, OTHER (EVERY 2 WEEKS)
     Route: 065
     Dates: start: 20220809

REACTIONS (7)
  - Urinary tract infection [Unknown]
  - Headache [Unknown]
  - Pruritus [Unknown]
  - Weight increased [Unknown]
  - Alopecia [Unknown]
  - Dizziness [Unknown]
  - Dysarthria [Unknown]

NARRATIVE: CASE EVENT DATE: 20220801
